FAERS Safety Report 9826224 (Version 1)
Quarter: 2014Q1

REPORT INFORMATION
  Report Type: Spontaneous
  Country: US (occurrence: US)
  Receive Date: 20140117
  Receipt Date: 20140117
  Transmission Date: 20141002
  Serious: No
  Sender: FDA-Public Use
  Company Number: US-009507513-1401USA004871

PATIENT
  Sex: 0

DRUGS (2)
  1. RALTEGRAVIR POTASSIUM [Suspect]
     Indication: HIV INFECTION
     Dosage: UNK
  2. ATAZANAVIR [Concomitant]
     Dosage: UNK

REACTIONS (1)
  - Polymerase chain reaction [Unknown]
